FAERS Safety Report 17027742 (Version 1)
Quarter: 2019Q4

REPORT INFORMATION
  Report Type: Spontaneous
  Country: BR (occurrence: BR)
  Receive Date: 20191113
  Receipt Date: 20191113
  Transmission Date: 20200122
  Serious: Yes (Hospitalization, Other)
  Sender: FDA-Public Use
  Company Number: BR-INCYTE CORPORATION-2019IN011173

PATIENT

DRUGS (1)
  1. JAKAVI [Suspect]
     Active Substance: RUXOLITINIB
     Indication: PRODUCT USED FOR UNKNOWN INDICATION
     Dosage: 20 MG, BID
     Route: 065

REACTIONS (7)
  - Neutrophil count decreased [Recovered/Resolved]
  - Bone marrow failure [Not Recovered/Not Resolved]
  - Neutrophil count decreased [Unknown]
  - Spleen disorder [Unknown]
  - Acute myeloid leukaemia [Unknown]
  - Disease progression [Unknown]
  - Abdominal discomfort [Unknown]
